FAERS Safety Report 24791816 (Version 1)
Quarter: 2024Q4

REPORT INFORMATION
  Report Type: Report from Study
  Country: CN (occurrence: CN)
  Receive Date: 20241231
  Receipt Date: 20241231
  Transmission Date: 20250114
  Serious: Yes (Hospitalization)
  Sender: ROCHE
  Company Number: CN-ROCHE-10000167086

PATIENT
  Age: 85 Year
  Sex: Female

DRUGS (1)
  1. VABYSMO [Suspect]
     Active Substance: FARICIMAB-SVOA
     Indication: Age-related macular degeneration
     Dosage: DOSE: 1 VIAL
     Route: 031

REACTIONS (9)
  - Syncope [Unknown]
  - Fall [Unknown]
  - Craniofacial fracture [Unknown]
  - Swelling face [Unknown]
  - Hypoaesthesia [Unknown]
  - Vision blurred [Unknown]
  - Palpitations [Unknown]
  - Amnesia [Unknown]
  - Eye disorder [Unknown]

NARRATIVE: CASE EVENT DATE: 20240801
